FAERS Safety Report 16724277 (Version 1)
Quarter: 2019Q3

REPORT INFORMATION
  Report Type: Spontaneous
  Country: US (occurrence: US)
  Receive Date: 20190821
  Receipt Date: 20190821
  Transmission Date: 20191005
  Serious: Yes (Other)
  Sender: FDA-Public Use
  Company Number: US-PFIZER INC-2019357169

PATIENT
  Age: 71 Year
  Sex: Female

DRUGS (1)
  1. INLYTA [Suspect]
     Active Substance: AXITINIB
     Indication: RENAL CANCER
     Dosage: 5 MG, UNK

REACTIONS (6)
  - Cancer pain [Unknown]
  - Neoplasm progression [Unknown]
  - Anaemia [Unknown]
  - Fatigue [Unknown]
  - Haematuria [Recovered/Resolved]
  - Hypertension [Recovering/Resolving]
